FAERS Safety Report 24161999 (Version 1)
Quarter: 2024Q3

REPORT INFORMATION
  Report Type: Spontaneous
  Country: FR (occurrence: FR)
  Receive Date: 20240801
  Receipt Date: 20240801
  Transmission Date: 20241017
  Serious: Yes (Death, Hospitalization, Other)
  Sender: AUROBINDO
  Company Number: FR-AUROBINDO-AUR-APL-2024-037504

PATIENT
  Age: 62 Year
  Sex: Female

DRUGS (4)
  1. FINGOLIMOD [Suspect]
     Active Substance: FINGOLIMOD
     Indication: Relapsing-remitting multiple sclerosis
     Dosage: UNK
     Route: 065
     Dates: start: 2018, end: 2018
  2. NATALIZUMAB [Suspect]
     Active Substance: NATALIZUMAB
     Indication: Relapsing-remitting multiple sclerosis
     Dosage: UNK
     Route: 065
     Dates: start: 201809, end: 202211
  3. DIMETHYL FUMARATE [Suspect]
     Active Substance: DIMETHYL FUMARATE
     Indication: Relapsing-remitting multiple sclerosis
     Dosage: UNK
     Route: 065
     Dates: start: 2014, end: 2017
  4. METHYLPREDNISOLONE [Concomitant]
     Active Substance: METHYLPREDNISOLONE
     Indication: Relapsing-remitting multiple sclerosis
     Dosage: 1 GRAM, ONCE A DAY
     Route: 048

REACTIONS (6)
  - Progressive multifocal leukoencephalopathy [Fatal]
  - JC virus infection [Fatal]
  - Frontotemporal dementia [Unknown]
  - Aphasia [Unknown]
  - Hemiparesis [Unknown]
  - Macular oedema [Unknown]
